FAERS Safety Report 7363639-X (Version None)
Quarter: 2011Q1

REPORT INFORMATION
  Report Type: 
  Country: None (occurrence: None)
  Receive Date: 20110321
  Receipt Date: 20110314
  Transmission Date: 20110831
  Serious: Yes (Death)
  Sender: FDA-Public Use
  Company Number: JP-JNJFOC-20110203438

PATIENT
  Age: 7 Decade
  Sex: Male

DRUGS (2)
  1. OXYCONTIN [Concomitant]
     Indication: PAIN
     Route: 048
  2. DUROTEP MT [Suspect]
     Indication: PRODUCT USED FOR UNKNOWN INDICATION
     Route: 062

REACTIONS (1)
  - BILE DUCT CANCER [None]
